FAERS Safety Report 9293573 (Version 2)
Quarter: 2013Q2

REPORT INFORMATION
  Report Type: Spontaneous
  Country: US (occurrence: US)
  Receive Date: 20130516
  Receipt Date: 20130523
  Transmission Date: 20140414
  Serious: Yes (Hospitalization)
  Sender: FDA-Public Use
  Company Number: US-ASTRAZENECA-2013SE32600

PATIENT
  Sex: Female

DRUGS (6)
  1. PRILOSEC [Suspect]
     Route: 048
     Dates: start: 201304
  2. PRILOSEC OTC [Suspect]
     Route: 048
     Dates: start: 201304
  3. ATENOLOL [Suspect]
     Dosage: TAPERED DOSE
     Route: 048
     Dates: end: 20130507
  4. LOSARTAN [Concomitant]
  5. SPIRONOLACTONE [Concomitant]
  6. BLOOD PRESSURE MEDICATIONS [Concomitant]
     Indication: BLOOD PRESSURE ABNORMAL

REACTIONS (5)
  - Fall [Unknown]
  - Dizziness postural [Unknown]
  - Contusion [Recovered/Resolved]
  - Excoriation [Recovered/Resolved]
  - Somnolence [Unknown]
